FAERS Safety Report 6530681-8 (Version None)
Quarter: 2010Q1

REPORT INFORMATION
  Report Type: 
  Country: None (occurrence: None)
  Receive Date: 20100108
  Receipt Date: 20081118
  Transmission Date: 20100710
  Serious: No
  Sender: FDA-Public Use
  Company Number: A0757263A

PATIENT
  Age: 70 Year
  Sex: Female

DRUGS (3)
  1. LOVAZA [Suspect]
     Dosage: 2G TWICE PER DAY
     Route: 048
     Dates: start: 20080701, end: 20081012
  2. OMEPRAZOLE [Concomitant]
  3. LEVOXYL [Concomitant]

REACTIONS (4)
  - ALOPECIA [None]
  - ARRHYTHMIA [None]
  - PRURITUS [None]
  - TACHYCARDIA [None]
